FAERS Safety Report 9653606 (Version 2)
Quarter: 2013Q4

REPORT INFORMATION
  Report Type: Spontaneous
  Country: US (occurrence: US)
  Receive Date: 20131029
  Receipt Date: 20131029
  Transmission Date: 20140711
  Serious: No
  Sender: FDA-Public Use
  Company Number: US-BIOGENIDEC-2013BI079964

PATIENT
  Age: 55 Year
  Sex: Male

DRUGS (4)
  1. TECFIDERA [Suspect]
     Indication: MULTIPLE SCLEROSIS
     Route: 048
     Dates: start: 20130801, end: 20130807
  2. TECFIDERA [Suspect]
     Indication: MULTIPLE SCLEROSIS
     Route: 048
     Dates: start: 20130808, end: 20130821
  3. VITAMIN D [Concomitant]
     Route: 048
  4. VITAMIN C [Concomitant]
     Route: 048

REACTIONS (5)
  - Pain of skin [Not Recovered/Not Resolved]
  - Abdominal pain upper [Unknown]
  - Skin burning sensation [Not Recovered/Not Resolved]
  - Asthenia [Unknown]
  - Influenza like illness [Unknown]
